FAERS Safety Report 4736223-1 (Version None)
Quarter: 2005Q3

REPORT INFORMATION
  Report Type: 
  Country: None (occurrence: None)
  Receive Date: 20050808
  Receipt Date: 20050727
  Transmission Date: 20060218
  Serious: Yes (Hospitalization)
  Sender: FDA-Public Use
  Company Number: PHRM2005FR02191

PATIENT
  Age: 81 Year
  Sex: Female

DRUGS (10)
  1. BUMETANIDE [Suspect]
     Indication: CARDIAC FAILURE
     Dosage: 1 MG/DAY
     Route: 048
     Dates: start: 20050615, end: 20050622
  2. BUMETANIDE [Suspect]
     Dosage: 1 MG/DAY
     Route: 048
  3. ZESTRIL [Suspect]
     Indication: CARDIAC FAILURE
     Dosage: 10 MG/DAY
     Route: 048
     Dates: end: 20050624
  4. ZESTRIL [Suspect]
     Dosage: 5 MG/DAY
     Route: 048
     Dates: start: 20050630
  5. ALDACTONE [Suspect]
     Indication: CARDIAC FAILURE
     Dosage: 50 MG/DAY
     Route: 048
     Dates: end: 20050622
  6. ALDACTONE [Suspect]
     Dosage: 12.5 MG/TWICE A WEEK
  7. DIGOXIN [Concomitant]
     Dosage: 0.125 MG/DAY 5 DAYS/7
     Route: 048
     Dates: end: 20050622
  8. CORDARONE [Concomitant]
     Indication: CARDIAC FAILURE
     Dosage: 200 MG/DAY 5 DAYS/7
     Route: 048
     Dates: start: 20050101
  9. ESIDRIX [Suspect]
     Indication: CARDIAC FAILURE
     Dosage: 12.5 MG/DAY
     Route: 048
     Dates: start: 20050615, end: 20050622
  10. ESIDRIX [Suspect]
     Dosage: 12.5 MG/EVERY OTHER DAY
     Route: 048
     Dates: start: 20050630

REACTIONS (5)
  - DRUG INTERACTION [None]
  - DYSPNOEA [None]
  - FALL [None]
  - HEADACHE [None]
  - HYPONATRAEMIA [None]
